FAERS Safety Report 9190164 (Version 2)
Quarter: 2013Q2

REPORT INFORMATION
  Report Type: Spontaneous
  Country: US (occurrence: US)
  Receive Date: 20130326
  Receipt Date: 20130503
  Transmission Date: 20140414
  Serious: Yes (Death)
  Sender: FDA-Public Use
  Company Number: US-ASTELLAS-2013US003155

PATIENT
  Age: 57 Year
  Sex: Male

DRUGS (1)
  1. PROGRAF [Suspect]
     Indication: LIVER TRANSPLANT
     Dosage: 2 MG, BID
     Route: 048
     Dates: start: 20060114, end: 20130302

REACTIONS (5)
  - Hepatic failure [Fatal]
  - Multi-organ failure [Fatal]
  - Complications of transplanted liver [Fatal]
  - Sepsis [Unknown]
  - Acute hepatitis B [Fatal]
